FAERS Safety Report 9505864 (Version 1)
Quarter: 2013Q1

REPORT INFORMATION
  Report Type: Spontaneous
  Country: US (occurrence: None)
  Receive Date: 20130219
  Receipt Date: 20130219
  Transmission Date: 20140127
  Serious: Yes (Life-Threatening, Hospitalization)
  Sender: FDA-Public Use
  Company Number: 1207USA009899

PATIENT
  Age: 55 Year
  Sex: Male

DRUGS (4)
  1. ZOCOR (SIMVASTATIN) [Suspect]
     Route: 048
  2. CIPROFLOXACIN (CIPROFLOXACIN) [Suspect]
  3. RAMIPRIL (RAMIPRIL) [Concomitant]
  4. CARVEDILOL (CARVEDILOL) [Concomitant]

REACTIONS (2)
  - Rhabdomyolysis [None]
  - Drug interaction [None]
